FAERS Safety Report 24015540 (Version 1)
Quarter: 2024Q2

REPORT INFORMATION
  Report Type: Spontaneous
  Country: IT (occurrence: None)
  Receive Date: 20240626
  Receipt Date: 20240626
  Transmission Date: 20240716
  Serious: Yes (Hospitalization)
  Sender: FDA-Public Use
  Company Number: 2024A146009

PATIENT
  Age: 30 Year
  Sex: Female

DRUGS (1)
  1. SEROQUEL [Suspect]
     Active Substance: QUETIAPINE FUMARATE
     Indication: Drug abuse
     Route: 048
     Dates: start: 20240602, end: 20240602

REACTIONS (2)
  - Chest pain [Not Recovered/Not Resolved]
  - Intentional overdose [Not Recovered/Not Resolved]
